FAERS Safety Report 9201917 (Version 1)
Quarter: 2013Q2

REPORT INFORMATION
  Report Type: Spontaneous
  Country: FR (occurrence: FR)
  Receive Date: 20130401
  Receipt Date: 20130401
  Transmission Date: 20140414
  Serious: Yes (Hospitalization)
  Sender: FDA-Public Use
  Company Number: FR-ROCHE-1205603

PATIENT
  Age: 73 Year
  Sex: Female

DRUGS (11)
  1. ROCEPHINE [Suspect]
     Indication: BRONCHITIS
     Route: 058
     Dates: start: 20130206, end: 20130213
  2. COUMADINE [Concomitant]
     Route: 065
  3. LERCAN [Concomitant]
     Route: 065
  4. SPIRONOLACTONE [Concomitant]
     Route: 065
  5. PROPRANOLOL [Concomitant]
     Route: 065
  6. MODOPAR [Concomitant]
     Route: 065
  7. RAMIPRIL [Concomitant]
     Route: 065
  8. AMIODARONE [Concomitant]
     Route: 065
  9. FUROSEMIDE [Concomitant]
     Route: 065
  10. SERESTA [Concomitant]
     Route: 065
  11. LYRICA [Concomitant]
     Route: 065

REACTIONS (1)
  - Hepatocellular injury [Recovered/Resolved]
